FAERS Safety Report 24129190 (Version 1)
Quarter: 2024Q3

REPORT INFORMATION
  Report Type: Spontaneous
  Country: US (occurrence: US)
  Receive Date: 20240723
  Receipt Date: 20240723
  Transmission Date: 20241016
  Serious: Yes (Other)
  Sender: PFIZER
  Company Number: US-PFIZER INC-202400221111

PATIENT
  Age: 38 Year
  Sex: Female

DRUGS (1)
  1. EUCRISA [Suspect]
     Active Substance: CRISABOROLE
     Dosage: UNK
     Route: 061

REACTIONS (2)
  - Diabetes mellitus [Not Recovered/Not Resolved]
  - Hypersensitivity [Not Recovered/Not Resolved]
